FAERS Safety Report 9496841 (Version 2)
Quarter: 2013Q3

REPORT INFORMATION
  Report Type: Spontaneous
  Country: AU (occurrence: AU)
  Receive Date: 20130904
  Receipt Date: 20130912
  Transmission Date: 20140515
  Serious: Yes (Hospitalization, Other)
  Sender: FDA-Public Use
  Company Number: AU-PFIZER INC-2013249910

PATIENT
  Age: 66 Year
  Sex: 0

DRUGS (2)
  1. LIGNOCAINE [Suspect]
     Dosage: UNK
     Route: 042
     Dates: start: 20130125, end: 20130128
  2. QUETIAPINE [Concomitant]
     Dosage: UNK

REACTIONS (2)
  - Troponin increased [Unknown]
  - Electrocardiogram T wave inversion [Unknown]
